FAERS Safety Report 6779654-0 (Version None)
Quarter: 2010Q2

REPORT INFORMATION
  Report Type: 
  Country: None (occurrence: None)
  Receive Date: 20100618
  Receipt Date: 20100610
  Transmission Date: 20101027
  Serious: Yes (Death, Hospitalization)
  Sender: FDA-Public Use
  Company Number: B0661219A

PATIENT
  Age: 58 Year
  Sex: Male

DRUGS (6)
  1. AUGMENTIN '125' [Suspect]
     Route: 065
     Dates: start: 20100421, end: 20100428
  2. KEPPRA [Suspect]
     Indication: STATUS EPILEPTICUS
     Route: 048
     Dates: start: 20100413, end: 20100504
  3. VANCOMYCIN [Suspect]
     Route: 065
  4. TOPIRAMATE [Suspect]
     Indication: DRUG USE FOR UNKNOWN INDICATION
     Route: 065
     Dates: start: 20100425, end: 20100503
  5. ZELITREX [Suspect]
     Indication: DRUG USE FOR UNKNOWN INDICATION
     Route: 065
     Dates: start: 20100413, end: 20100528
  6. DEPAKENE [Concomitant]
     Route: 065
     Dates: start: 20100413

REACTIONS (4)
  - CYTOLYTIC HEPATITIS [None]
  - HYPERAMMONAEMIA [None]
  - NEUROLOGICAL DECOMPENSATION [None]
  - OFF LABEL USE [None]
